FAERS Safety Report 10081060 (Version 2)
Quarter: 2014Q2

REPORT INFORMATION
  Report Type: Report from Study
  Country: DE (occurrence: DE)
  Receive Date: 20140416
  Receipt Date: 20140416
  Transmission Date: 20141212
  Serious: No
  Sender: FDA-Public Use
  Company Number: PHHY2013DE134372

PATIENT
  Sex: Female

DRUGS (8)
  1. AMN107 [Suspect]
     Indication: CHRONIC MYELOID LEUKAEMIA
     Dosage: 600 MG, PER DAY
     Route: 048
     Dates: start: 20130816
  2. AMN107 [Suspect]
     Dosage: 600 MG, PER DAY
     Route: 048
     Dates: start: 20130819
  3. BISOPROLOL [Concomitant]
     Dosage: 5 MG, UNK
  4. MINOCYCLIN [Concomitant]
     Dosage: 100 MG, UNK
  5. MESALAZIN [Concomitant]
     Dosage: 2000 MG, UNK
  6. ALLOPURINOL [Concomitant]
     Dosage: 300 MG, UNK
  7. LOPERAMID [Concomitant]
     Dates: start: 20111105
  8. KREON [Concomitant]
     Dates: start: 20131105

REACTIONS (3)
  - Paraesthesia [Recovered/Resolved]
  - Diarrhoea [Not Recovered/Not Resolved]
  - Dizziness [Recovered/Resolved]
